FAERS Safety Report 5334936-4 (Version None)
Quarter: 2007Q1

REPORT INFORMATION
  Report Type: 
  Country: None (occurrence: None)
  Receive Date: 20070308
  Receipt Date: 20070109
  Transmission Date: 20070707
  Serious: No
  Sender: FDA-Public Use
  Company Number: 2007-BP-00407BP

PATIENT
  Age: 59 Year
  Sex: Male

DRUGS (8)
  1. SPIRIVA [Suspect]
     Indication: CHRONIC OBSTRUCTIVE PULMONARY DISEASE
     Dosage: 18 MCG (18 MCG, 1 IN 1 D), IH
     Route: 055
     Dates: start: 20061201
  2. TEGRETOL [Concomitant]
  3. DILANTIN [Concomitant]
  4. MS CONTIN [Concomitant]
  5. RITALIN [Concomitant]
  6. MS CONTIN [Concomitant]
  7. ALDACTONE [Concomitant]
  8. LASIX [Concomitant]

REACTIONS (2)
  - CONSTIPATION [None]
  - PHARYNGEAL OEDEMA [None]
